FAERS Safety Report 8826802 (Version 3)
Quarter: 2012Q4

REPORT INFORMATION
  Report Type: Report from Study
  Country: JP (occurrence: JP)
  Receive Date: 20121005
  Receipt Date: 20121019
  Transmission Date: 20130627
  Serious: Yes (Hospitalization)
  Sender: FDA-Public Use
  Company Number: US-PFIZER INC-2012238073

PATIENT
  Age: 48 Year
  Sex: Female

DRUGS (7)
  1. REVATIO [Suspect]
     Indication: PULMONARY HYPERTENSION
     Dosage: UNK
     Route: 048
     Dates: start: 200610
  2. AMBRISENTAN [Suspect]
     Indication: PULMONARY ARTERIAL HYPERTENSION
     Dosage: 2.5 mg, 1x/day
     Route: 048
     Dates: start: 20110124, end: 20110126
  3. AMBRISENTAN [Suspect]
     Dosage: 2.5 mg, 2x/day
     Route: 048
     Dates: start: 20110127, end: 20111205
  4. AMBRISENTAN [Suspect]
     Dosage: 2.5 mg, 3x/day
     Route: 048
     Dates: start: 20111206, end: 20120430
  5. AMBRISENTAN [Suspect]
     Dosage: 2.5 mg, 2x/day
     Route: 048
     Dates: start: 20120501, end: 20120605
  6. FLOLAN [Concomitant]
     Dosage: UNK
     Dates: start: 20081111
  7. TRACLEER [Concomitant]
     Indication: PULMONARY ARTERIAL HYPERTENSION

REACTIONS (1)
  - Liver disorder [Recovering/Resolving]
